FAERS Safety Report 9529480 (Version 2)
Quarter: 2014Q1

REPORT INFORMATION
  Report Type: Spontaneous
  Country: US (occurrence: None)
  Receive Date: 20130329
  Receipt Date: 20130627
  Transmission Date: 20141002
  Serious: No
  Sender: FDA-Public Use
  Company Number: 1000041728

PATIENT
  Age: 70 Year
  Sex: Female

DRUGS (3)
  1. LINZESS [Suspect]
     Indication: IRRITABLE BOWEL SYNDROME
     Dosage: 290MCG 1 IN 1 D, PO
     Route: 048
     Dates: start: 20130116
  2. BLOOD PRESSURE MEDICATION NOS [Concomitant]
  3. CHOLESTEROL MEDICATION NOS (CHOLESTEROL MEDICATIONS NOS) [Concomitant]

REACTIONS (2)
  - Diarrhoea [None]
  - Off label use [None]
